FAERS Safety Report 4582102-2 (Version None)
Quarter: 2005Q1

REPORT INFORMATION
  Report Type: 
  Country: None (occurrence: None)
  Receive Date: 20050119
  Receipt Date: 20031203
  Transmission Date: 20050727
  Serious: Yes (Hospitalization)
  Sender: FDA-Public Use
  Company Number: A03200302898

PATIENT
  Age: 87 Year
  Sex: Female
  Weight: 85.2762 kg

DRUGS (4)
  1. PLAVIX [Suspect]
     Indication: CARDIAC FAILURE CONGESTIVE
     Dosage: 75 MG QD - ORAL
     Route: 048
     Dates: start: 20031001, end: 20031127
  2. ACETYLSALICYLIC ACID SRT [Concomitant]
  3. ANTIDIABETIC [Concomitant]
  4. ESCITALOPRAM OXALATE [Concomitant]

REACTIONS (1)
  - GASTRIC ULCER HAEMORRHAGE [None]
